FAERS Safety Report 18042665 (Version 5)
Quarter: 2025Q4

REPORT INFORMATION
  Report Type: Spontaneous
  Country: JP (occurrence: JP)
  Receive Date: 20200720
  Receipt Date: 20251203
  Transmission Date: 20260117
  Serious: Yes (Death, Hospitalization)
  Sender: ELI LILLY AND COMPANY
  Company Number: JP-ELI_LILLY_AND_COMPANY-JP202007005620

PATIENT
  Age: 77 Year
  Sex: Female
  Weight: 31 kg

DRUGS (8)
  1. ADCIRCA [Suspect]
     Active Substance: TADALAFIL
     Indication: Pulmonary arterial hypertension
     Dosage: UNK UNK, UNKNOWN
     Route: 048
  2. UPTRAVI [Suspect]
     Active Substance: SELEXIPAG
     Indication: Pulmonary arterial hypertension
     Dosage: 0.2 MG, DAILY
     Route: 048
     Dates: start: 20180205
  3. AZOSEMIDE [Suspect]
     Active Substance: AZOSEMIDE
     Indication: Cardiac failure
     Dosage: UNK UNK, UNKNOWN
     Route: 048
  4. AZOSEMIDE [Suspect]
     Active Substance: AZOSEMIDE
     Indication: Arrhythmia
     Dosage: 10 MG, DAILY
     Route: 048
  5. SPIRONOLACTONE [Suspect]
     Active Substance: SPIRONOLACTONE
     Indication: Right ventricular failure
     Dosage: UNK UNK, UNKNOWN
     Route: 048
     Dates: start: 20180327
  6. OPSUMIT [Suspect]
     Active Substance: MACITENTAN
     Indication: Pulmonary arterial hypertension
     Dosage: 10 MG, UNKNOWN
     Route: 048
     Dates: start: 20180125
  7. WARFARIN [Concomitant]
     Active Substance: WARFARIN
     Indication: Product used for unknown indication
     Dosage: UNK
     Route: 048
     Dates: start: 20190625
  8. VONOPRAZAN FUMARATE [Concomitant]
     Active Substance: VONOPRAZAN FUMARATE
     Indication: Gastrooesophageal reflux disease
     Dosage: 10 MG, DAILY
     Route: 048

REACTIONS (9)
  - Pulmonary arterial hypertension [Fatal]
  - Right ventricular failure [Recovered/Resolved]
  - Anaemia [Recovering/Resolving]
  - Hyperuricaemia [Recovered/Resolved]
  - Iron deficiency anaemia [Recovered/Resolved]
  - Renal impairment [Recovering/Resolving]
  - Hyperuricaemia [Recovering/Resolving]
  - Nasal congestion [Recovering/Resolving]
  - Diarrhoea [Recovering/Resolving]

NARRATIVE: CASE EVENT DATE: 20180129
